FAERS Safety Report 8848230 (Version 2)
Quarter: 2015Q3

REPORT INFORMATION
  Report Type: Report from Study
  Country: US (occurrence: US)
  Receive Date: 20121018
  Receipt Date: 20150812
  Transmission Date: 20151125
  Serious: Yes (Hospitalization)
  Sender: FDA-Public Use
  Company Number: US-ROCHE-1123996

PATIENT
  Sex: Male

DRUGS (7)
  1. PROTROPIN [Suspect]
     Active Substance: SOMATREM
     Indication: FAILURE TO THRIVE
     Route: 058
     Dates: start: 19911125
  2. PROTROPIN [Suspect]
     Active Substance: SOMATREM
     Indication: GROWTH HORMONE DEFICIENCY
     Route: 058
     Dates: start: 19960918
  3. PROTROPIN [Suspect]
     Active Substance: SOMATREM
     Indication: HYPOTHALAMO-PITUITARY DISORDER
  4. THEOPHYLLIN [Concomitant]
     Active Substance: THEOPHYLLINE ANHYDROUS
     Route: 048
  5. VANCERIL [Concomitant]
     Active Substance: BECLOMETHASONE DIPROPIONATE
  6. PROTROPIN [Suspect]
     Active Substance: SOMATREM
     Indication: EMPTY SELLA SYNDROME
     Route: 058
  7. INTAL [Concomitant]
     Active Substance: CROMOLYN SODIUM

REACTIONS (1)
  - Asthma [Unknown]
